FAERS Safety Report 8479263-1 (Version None)
Quarter: 2012Q2

REPORT INFORMATION
  Report Type: 
  Country: None (occurrence: None)
  Receive Date: 20120629
  Receipt Date: 20120622
  Transmission Date: 20120825
  Serious: Yes (Other)
  Sender: FDA-Public Use
  Company Number: US-GLAXOSMITHKLINE-A0976409A

PATIENT
  Age: 78 Year
  Sex: Male

DRUGS (13)
  1. ASPIRIN [Concomitant]
  2. FISH OIL [Concomitant]
  3. FLAX SEED [Concomitant]
  4. SIMVASTATIN [Concomitant]
  5. VITAMIN D [Concomitant]
  6. CYPROHEPTADINE HCL [Concomitant]
  7. GLUCOSAMINE [Concomitant]
  8. MIRALAX [Concomitant]
  9. LEVOTHYROXINE SODIUM [Concomitant]
  10. RYTHMOL SR [Suspect]
     Indication: ATRIAL FIBRILLATION
     Dosage: 325MG TWICE PER DAY
     Route: 048
     Dates: start: 20050101
  11. LISINOPRIL [Concomitant]
  12. ACIDOPHILUS [Concomitant]
  13. MULTIVITAMIN [Concomitant]

REACTIONS (3)
  - DRUG ADMINISTRATION ERROR [None]
  - CONDUCTION DISORDER [None]
  - HEART RATE DECREASED [None]
